FAERS Safety Report 16793013 (Version 1)
Quarter: 2019Q3

REPORT INFORMATION
  Report Type: Spontaneous
  Country: US (occurrence: US)
  Receive Date: 20190911
  Receipt Date: 20190911
  Transmission Date: 20191005
  Serious: No
  Sender: FDA-Public Use
  Company Number: US-CELGENEUS-USA-20190810494

PATIENT
  Age: 64 Year
  Sex: Male

DRUGS (1)
  1. OTEZLA [Suspect]
     Active Substance: APREMILAST
     Indication: PSORIATIC ARTHROPATHY
     Dosage: 60 MILLIGRAM
     Route: 048
     Dates: start: 20190816

REACTIONS (5)
  - Frequent bowel movements [Unknown]
  - Fatigue [Unknown]
  - Hypersomnia [Unknown]
  - Somnolence [Unknown]
  - Thirst [Unknown]

NARRATIVE: CASE EVENT DATE: 20190821
